FAERS Safety Report 13899610 (Version 1)
Quarter: 2017Q3

REPORT INFORMATION
  Report Type: Report from Study
  Country: CZ (occurrence: CZ)
  Receive Date: 20170824
  Receipt Date: 20170824
  Transmission Date: 20171127
  Serious: Yes (Life-Threatening, Hospitalization)
  Sender: FDA-Public Use
  Company Number: PHHO2014CZ020395

PATIENT
  Age: 58 Year
  Sex: Male
  Weight: 66 kg

DRUGS (7)
  1. TRAMETINIB [Suspect]
     Active Substance: TRAMETINIB
     Indication: METASTATIC MALIGNANT MELANOMA
     Dosage: 2 MG, QD
     Route: 048
     Dates: start: 20131220, end: 20140111
  2. FENTANYL. [Suspect]
     Active Substance: FENTANYL
     Indication: PAIN
     Dosage: 25 MG, UNK
     Route: 065
     Dates: start: 20131129
  3. OMEPRAZOLE. [Concomitant]
     Active Substance: OMEPRAZOLE
     Indication: GASTRIC ULCER
     Dosage: 20 MG, BID
     Route: 048
     Dates: start: 20131129
  4. DABRAFENIB [Suspect]
     Active Substance: DABRAFENIB
     Indication: METASTATIC MALIGNANT MELANOMA
     Dosage: 150 MG, BID
     Route: 048
     Dates: start: 20131220, end: 20140111
  5. MEGESTROL [Suspect]
     Active Substance: MEGESTROL
     Indication: CACHEXIA
     Dosage: 400 MG, BID
     Route: 048
     Dates: start: 20131129
  6. ETAMSYLATE [Concomitant]
     Active Substance: ETHAMSYLATE
     Indication: ULCER HAEMORRHAGE
     Dosage: 500 MG, TID
     Route: 048
     Dates: start: 20131219
  7. ZOLEDRONATE [Suspect]
     Active Substance: ZOLEDRONIC ACID
     Indication: PRODUCT USED FOR UNKNOWN INDICATION
     Dosage: UNK
     Route: 065

REACTIONS (3)
  - Leukopenia [Not Recovered/Not Resolved]
  - Pyrexia [Recovered/Resolved]
  - Mucosal inflammation [Not Recovered/Not Resolved]

NARRATIVE: CASE EVENT DATE: 20140111
